FAERS Safety Report 16287771 (Version 2)
Quarter: 2019Q2

REPORT INFORMATION
  Report Type: Spontaneous
  Country: FR (occurrence: FR)
  Receive Date: 20190508
  Receipt Date: 20190607
  Transmission Date: 20190711
  Serious: Yes (Life-Threatening, Other)
  Sender: FDA-Public Use
  Company Number: FR-MYLANLABS-2019M1044000

PATIENT
  Age: 69 Year
  Sex: Female
  Weight: 69 kg

DRUGS (2)
  1. AROMASINE [Concomitant]
     Active Substance: EXEMESTANE
     Dosage: UNK
     Dates: start: 20190111
  2. EVEROLIMUS MYLAN [Suspect]
     Active Substance: EVEROLIMUS
     Indication: PRODUCT USED FOR UNKNOWN INDICATION
     Dosage: UNK

REACTIONS (14)
  - Back pain [Recovering/Resolving]
  - Vertigo [Recovering/Resolving]
  - Feeding disorder [Recovering/Resolving]
  - Stomatitis [Recovering/Resolving]
  - Gait disturbance [Recovering/Resolving]
  - Product substitution issue [Unknown]
  - Blister [Recovering/Resolving]
  - Aphthous ulcer [Recovering/Resolving]
  - Lung infection [Recovering/Resolving]
  - Keratitis [Recovering/Resolving]
  - Erythema [Recovering/Resolving]
  - Weight decreased [Recovering/Resolving]
  - Skin ulcer [Recovering/Resolving]
  - Peripheral swelling [Recovering/Resolving]
